FAERS Safety Report 15288919 (Version 1)
Quarter: 2018Q3

REPORT INFORMATION
  Report Type: Spontaneous
  Country: US (occurrence: US)
  Receive Date: 20180802
  Receipt Date: 20180802
  Transmission Date: 20181010
  Serious: Yes (Hospitalization)
  Sender: FDA-Public Use
  Company Number: None

PATIENT
  Age: 35 Year
  Sex: Female
  Weight: 65.3 kg

DRUGS (5)
  1. CIMZIA [Concomitant]
     Active Substance: CERTOLIZUMAB PEGOL
  2. ENTYVIO [Suspect]
     Active Substance: VEDOLIZUMAB
  3. PREDNISONE. [Concomitant]
     Active Substance: PREDNISONE
  4. PHENERGAN [Concomitant]
     Active Substance: PROMETHAZINE HYDROCHLORIDE
  5. ZOFRAN [Concomitant]
     Active Substance: ONDANSETRON HYDROCHLORIDE

REACTIONS (2)
  - Gastrointestinal stoma complication [None]
  - Postoperative ileus [None]

NARRATIVE: CASE EVENT DATE: 20180216
